FAERS Safety Report 17340400 (Version 2)
Quarter: 2020Q1

REPORT INFORMATION
  Report Type: Report from Study
  Country: US (occurrence: US)
  Receive Date: 20200129
  Receipt Date: 20200205
  Transmission Date: 20200409
  Serious: No
  Sender: FDA-Public Use
  Company Number: NVSC2020US021377

PATIENT
  Sex: Male

DRUGS (1)
  1. ENTRESTO [Suspect]
     Active Substance: SACUBITRIL\VALSARTAN
     Indication: CARDIAC FAILURE CONGESTIVE
     Dosage: 24 MG, ONCE2SDO (24 MG SACUBITRIL /26 MG VALSARTAN) - 50MG
     Route: 048

REACTIONS (3)
  - Blood pressure decreased [Unknown]
  - Influenza [Unknown]
  - Dizziness [Unknown]
